FAERS Safety Report 4596736-2 (Version None)
Quarter: 2005Q1

REPORT INFORMATION
  Report Type: 
  Country: None (occurrence: None)
  Receive Date: 20050228
  Receipt Date: 20050216
  Transmission Date: 20050727
  Serious: Yes (Hospitalization)
  Sender: FDA-Public Use
  Company Number: S04-FRA-01665-01

PATIENT
  Age: 75 Year
  Sex: Male

DRUGS (5)
  1. MEMANTINE HCL [Suspect]
     Dosage: 10 MG QD PO
     Route: 048
     Dates: start: 20030314, end: 20030329
  2. EQUANIL [Concomitant]
  3. DEPAKENE [Concomitant]
  4. EXELON [Concomitant]
  5. DISTILBENE (DIETHYLSTILBESTROL) [Concomitant]

REACTIONS (3)
  - CONFUSIONAL STATE [None]
  - DISORIENTATION [None]
  - GRAND MAL CONVULSION [None]
